FAERS Safety Report 6010253-4 (Version None)
Quarter: 2008Q4

REPORT INFORMATION
  Report Type: 
  Country: None (occurrence: None)
  Receive Date: 20081218
  Receipt Date: 20080222
  Transmission Date: 20090506
  Serious: No
  Sender: FDA-Public Use
  Company Number: A0712790A

PATIENT
  Age: 82 Year
  Sex: Male

DRUGS (3)
  1. FLUTICASONE PROPIONATE [Suspect]
     Indication: SINUS DISORDER
     Dosage: 4SPR PER DAY
     Route: 045
     Dates: start: 20080203
  2. ASPIRIN [Concomitant]
     Dosage: 81MG PER DAY
  3. MULTI-VITAMIN [Concomitant]

REACTIONS (1)
  - EYE DISORDER [None]
